FAERS Safety Report 10016353 (Version 1)
Quarter: 2014Q1

REPORT INFORMATION
  Report Type: Spontaneous
  Country: US (occurrence: US)
  Receive Date: 20140317
  Receipt Date: 20140317
  Transmission Date: 20141002
  Serious: Yes (Other)
  Sender: FDA-Public Use
  Company Number: US-BAYER-2014-037485

PATIENT
  Age: 69 Year
  Sex: Male
  Weight: 79.37 kg

DRUGS (2)
  1. ALEVE CAPLET [Suspect]
     Indication: BACK PAIN
     Dosage: 1 DF, PRN
     Route: 048
     Dates: start: 1985, end: 2011
  2. NAPROXEN [Suspect]
     Dosage: UNK
     Dates: start: 2011, end: 2013

REACTIONS (1)
  - Renal disorder [Not Recovered/Not Resolved]
